FAERS Safety Report 9627102 (Version 1)
Quarter: 2013Q4

REPORT INFORMATION
  Report Type: Spontaneous
  Country: US (occurrence: None)
  Receive Date: 20131011
  Receipt Date: 20131011
  Transmission Date: 20140711
  Serious: Yes (Other)
  Sender: FDA-Public Use
  Company Number: SYM-2013-11100

PATIENT
  Age: 18 Day
  Sex: Male
  Weight: 4 kg

DRUGS (1)
  1. FLECAINIDE ACETATE [Suspect]
     Indication: SUPRAVENTRICULAR TACHYCARDIA
     Dosage: EVERY 8 HOURS
     Route: 048

REACTIONS (5)
  - Tachycardia [None]
  - Cardiac arrest [None]
  - Drug level increased [None]
  - Incorrect dose administered [None]
  - Drug dispensing error [None]
